FAERS Safety Report 24217411 (Version 1)
Quarter: 2024Q3

REPORT INFORMATION
  Report Type: Spontaneous
  Country: US (occurrence: None)
  Receive Date: 20240815
  Receipt Date: 20240815
  Transmission Date: 20241016
  Serious: Yes (unspecified)
  Sender: Public
  Company Number: None

PATIENT
  Age: 48 Year
  Sex: Female

DRUGS (1)
  1. KEVZARA [Suspect]
     Active Substance: SARILUMAB
     Indication: Rheumatoid arthritis
     Dates: start: 20240703, end: 20240812

REACTIONS (1)
  - Injection site reaction [None]

NARRATIVE: CASE EVENT DATE: 20240812
